FAERS Safety Report 11076246 (Version 4)
Quarter: 2015Q2

REPORT INFORMATION
  Report Type: Spontaneous
  Country: US (occurrence: US)
  Receive Date: 20150429
  Receipt Date: 20150608
  Transmission Date: 20150821
  Serious: Yes (Hospitalization, Other)
  Sender: FDA-Public Use
  Company Number: US-PFIZER INC-2015134979

PATIENT
  Age: 75 Year
  Sex: Female
  Weight: 64 kg

DRUGS (8)
  1. FERROUS SULFATE [Concomitant]
     Active Substance: FERROUS SULFATE\FERROUS SULFATE, DRIED
     Indication: ANAEMIA
     Dosage: 5 G, UNK
  2. CRESTOR [Concomitant]
     Active Substance: ROSUVASTATIN CALCIUM
     Indication: HYPERLIPIDAEMIA
     Dosage: 10 MG, UNK
  3. FISH OIL  + VITAMIN D-3 [Concomitant]
     Dosage: FISH OIL - 1200 MG + VITAMIN D-3-2000
  4. SUTENT [Suspect]
     Active Substance: SUNITINIB MALATE
     Indication: NEOPLASM MALIGNANT
     Dosage: 50 MG, 1X/DAY
     Route: 048
     Dates: start: 20150112, end: 20150320
  5. SUTENT [Suspect]
     Active Substance: SUNITINIB MALATE
     Dosage: UNK MG, UNK
  6. METOPROLOL [Concomitant]
     Active Substance: METOPROLOL
     Indication: HYPERTENSION
     Dosage: 50 MG, UNK
  7. WARFARIN [Concomitant]
     Active Substance: WARFARIN
     Dosage: 5 MG, UNK (3 DAY 1 1/2 4- DAY 1 DAILY)
     Dates: start: 20141003
  8. CENTRUM SILVER [Concomitant]
     Active Substance: VITAMINS
     Dosage: UNK

REACTIONS (12)
  - Contusion [Unknown]
  - Hypophagia [Recovered/Resolved]
  - Gait disturbance [Unknown]
  - Disease progression [Unknown]
  - Peripheral swelling [Unknown]
  - Mouth swelling [Unknown]
  - Anaemia [Recovered/Resolved]
  - Ocular hyperaemia [Recovered/Resolved]
  - Neoplasm malignant [Unknown]
  - Tongue haemorrhage [Recovered/Resolved]
  - Epistaxis [Recovered/Resolved]
  - Asthenia [Recovered/Resolved]

NARRATIVE: CASE EVENT DATE: 2015
